FAERS Safety Report 6884844-2 (Version None)
Quarter: 2010Q3

REPORT INFORMATION
  Report Type: 
  Country: None (occurrence: None)
  Receive Date: 20100729
  Receipt Date: 20070920
  Transmission Date: 20110219
  Serious: No
  Sender: FDA-Public Use
  Company Number: US-PFIZER INC-2007079473

PATIENT
  Sex: Female
  Weight: 86.18 kg

DRUGS (2)
  1. CELEBREX [Suspect]
     Indication: PAIN IN EXTREMITY
  2. PRILOSEC [Concomitant]
     Indication: DYSPEPSIA

REACTIONS (2)
  - GASTRIC DISORDER [None]
  - MALAISE [None]
